FAERS Safety Report 6197234-5 (Version None)
Quarter: 2009Q2

REPORT INFORMATION
  Report Type: 
  Country: None (occurrence: None)
  Receive Date: 20090521
  Receipt Date: 20071205
  Transmission Date: 20091009
  Serious: Yes (Hospitalization, Other)
  Sender: FDA-Public Use
  Company Number: US-ASTRAZENECA-2007UW01705

PATIENT
  Age: 281 Month
  Sex: Male
  Weight: 68 kg

DRUGS (39)
  1. SEROQUEL [Suspect]
     Indication: BIPOLAR DISORDER
     Route: 048
     Dates: start: 19970401, end: 20060417
  2. SEROQUEL [Suspect]
     Indication: HALLUCINATION
     Route: 048
     Dates: start: 19970401, end: 20060417
  3. SEROQUEL [Suspect]
     Dosage: 25-1000 MG
     Route: 048
     Dates: start: 20010602
  4. SEROQUEL [Suspect]
     Dosage: 25-1000 MG
     Route: 048
     Dates: start: 20010602
  5. ABILIFY [Concomitant]
  6. ADDERALL 10 [Concomitant]
     Dosage: 10-20 MG
  7. AMITRIPTLINE HYDROCHLORIDE TAB [Concomitant]
  8. ATIVAN [Concomitant]
  9. COGENTIN [Concomitant]
     Dosage: 0.5 - 1 MG
  10. DEPAKOTE [Concomitant]
  11. EFFEXOR [Concomitant]
     Dosage: 75-150 MG
  12. ELAVIL [Concomitant]
  13. FOLIC ACID [Concomitant]
  14. GABAPENTIN [Concomitant]
  15. HALDOL [Concomitant]
     Indication: PSYCHOTIC DISORDER
  16. HALDOL [Concomitant]
     Indication: AGITATION
  17. HYDROCODONE BITARTRATE [Concomitant]
     Indication: INTERVERTEBRAL DISC PROTRUSION
     Dosage: 7.5 TO 10 MG
  18. INSULIN [Concomitant]
  19. KLONOPIN [Concomitant]
     Indication: ANXIETY
     Dosage: 0.5 TO 1 MG
  20. LANTUS [Concomitant]
  21. LORAZEPAM [Concomitant]
     Dosage: 0.5 TO 1 MG
  22. LOXAPINE [Concomitant]
  23. MOTRIN [Concomitant]
  24. OXYCONTIN [Concomitant]
  25. PROZAC [Concomitant]
  26. REMERON [Concomitant]
  27. RISPERDAL [Concomitant]
  28. STELAZINE [Concomitant]
  29. SUDAFED 12 HOUR [Concomitant]
  30. TEGRETOL [Concomitant]
  31. THIAMINE HCL [Concomitant]
  32. TRAZODONE HCL [Concomitant]
  33. TRILAFON [Concomitant]
  34. XANAX [Concomitant]
  35. ZYPREXA [Concomitant]
     Dosage: 5 - 10 MG
  36. BENZTROPINE [Concomitant]
  37. CLONAZEPAM [Concomitant]
  38. FLUOXETINE HCL [Concomitant]
  39. VALPROATE SODIUM [Concomitant]

REACTIONS (43)
  - AFFECTIVE DISORDER [None]
  - AGITATION [None]
  - ANGINA PECTORIS [None]
  - ANTISOCIAL PERSONALITY DISORDER [None]
  - ANXIETY [None]
  - ASTHENIA [None]
  - ATTENTION DEFICIT/HYPERACTIVITY DISORDER [None]
  - BACK PAIN [None]
  - CHEST PAIN [None]
  - CHILLS [None]
  - CONVULSION [None]
  - DECREASED INTEREST [None]
  - DELUSION [None]
  - DEPRESSION [None]
  - DIABETES MELLITUS INADEQUATE CONTROL [None]
  - DIZZINESS [None]
  - DRUG DEPENDENCE [None]
  - DRY MOUTH [None]
  - FATIGUE [None]
  - FEELINGS OF WORTHLESSNESS [None]
  - HALLUCINATION [None]
  - HEAD INJURY [None]
  - HEADACHE [None]
  - HEART RATE INCREASED [None]
  - HYPERGLYCAEMIA [None]
  - HYPERHIDROSIS [None]
  - HYPERTENSION [None]
  - INSOMNIA [None]
  - INTERMITTENT EXPLOSIVE DISORDER [None]
  - IRRITABILITY [None]
  - MYALGIA [None]
  - MYOCARDIAL INFARCTION [None]
  - NAUSEA [None]
  - OROPHARYNGEAL PAIN [None]
  - PANIC DISORDER WITH AGORAPHOBIA [None]
  - POST-TRAUMATIC STRESS DISORDER [None]
  - RENAL PAIN [None]
  - SCHIZOAFFECTIVE DISORDER [None]
  - SCHIZOPHRENIA [None]
  - SUBSTANCE ABUSE [None]
  - TACHYCARDIA [None]
  - TYPE 2 DIABETES MELLITUS [None]
  - URINARY TRACT INFECTION [None]
